FAERS Safety Report 23453735 (Version 1)
Quarter: 2024Q1

REPORT INFORMATION
  Report Type: Spontaneous
  Country: US (occurrence: US)
  Receive Date: 20240129
  Receipt Date: 20240129
  Transmission Date: 20240409
  Serious: Yes (Other)
  Sender: FDA-Public Use
  Company Number: US-ABBVIE-5602876

PATIENT
  Sex: Female

DRUGS (1)
  1. REFRESH CLASSIC [Suspect]
     Active Substance: POLYVINYL ALCOHOL\POVIDONE
     Indication: Product used for unknown indication
     Dosage: FORM STRENGTH: POLYVINYL ALCOHOL 14 MG/ML/POVIDONE 6MG/ML SOLUTION UNIT DOSE
     Route: 047

REACTIONS (1)
  - Cataract [Unknown]
